FAERS Safety Report 9929959 (Version 2)
Quarter: 2014Q1

REPORT INFORMATION
  Report Type: Spontaneous
  Country: TR (occurrence: TR)
  Receive Date: 20140227
  Receipt Date: 20140228
  Transmission Date: 20141002
  Serious: Yes (Other)
  Sender: FDA-Public Use
  Company Number: PHHY2014TR020220

PATIENT
  Age: 70 Year
  Sex: Male

DRUGS (6)
  1. PREGABALIN [Suspect]
     Indication: RESTLESS LEGS SYNDROME
     Dosage: 150 MG, UNK
  2. PREGABALIN [Suspect]
     Indication: DIABETIC NEUROPATHY
  3. GABAPENTIN [Suspect]
     Indication: RESTLESS LEGS SYNDROME
     Dosage: 300 MG, TID
  4. GABAPENTIN [Suspect]
     Indication: NEURALGIA
  5. PRAMIPEXOLE [Suspect]
     Indication: RESTLESS LEGS SYNDROME
     Dosage: 0.25 MG MORNING, 0.25 MG NOON AND 0.5 MG EVENING
  6. PRAMIPEXOLE [Suspect]
     Dosage: 0.125 MG, TID

REACTIONS (1)
  - Dyskinesia [Recovered/Resolved]
